FAERS Safety Report 5274967-6 (Version None)
Quarter: 2007Q1

REPORT INFORMATION
  Report Type: 
  Country: None (occurrence: None)
  Receive Date: 20061207
  Receipt Date: 20051219
  Transmission Date: 20070707
  Serious: Yes (Hospitalization)
  Sender: FDA-Public Use
  Company Number: 2005UW16995

PATIENT
  Age: 45 Year
  Sex: Male
  Weight: 107.5025 kg

DRUGS (4)
  1. TOPROL-XL [Suspect]
     Indication: HYPERTENSION
     Dosage: 100 MG QD PO
     Route: 048
     Dates: start: 20030801, end: 20031223
  2. LIPITOR [Concomitant]
  3. VITAMINS [Concomitant]
  4. ASPIRIN [Concomitant]

REACTIONS (2)
  - ATRIOVENTRICULAR BLOCK [None]
  - BRADYCARDIA [None]
